FAERS Safety Report 6977150-9 (Version None)
Quarter: 2010Q3

REPORT INFORMATION
  Report Type: 
  Country: None (occurrence: None)
  Receive Date: 20100910
  Receipt Date: 20100830
  Transmission Date: 20110219
  Serious: Yes (Other)
  Sender: FDA-Public Use
  Company Number: GR-WATSON-2010-11782

PATIENT
  Age: 82 Year
  Sex: Male

DRUGS (1)
  1. EPIRUBICIN HYDROCHLORIDE [Suspect]
     Indication: BLADDER CANCER
     Dosage: 50 ML, X 2 INSTILLATIONS
     Route: 043

REACTIONS (6)
  - BLADDER PERFORATION [None]
  - CELLULITIS [None]
  - EXTRAVASATION [None]
  - FIBROSIS [None]
  - INFLAMMATION [None]
  - NECROSIS [None]
